FAERS Safety Report 23154290 (Version 1)
Quarter: 2023Q4

REPORT INFORMATION
  Report Type: Spontaneous
  Country: ES (occurrence: ES)
  Receive Date: 20231107
  Receipt Date: 20231107
  Transmission Date: 20240109
  Serious: No
  Sender: FDA-Public Use
  Company Number: ES-SCALL-2023-EME-032282

PATIENT
  Sex: Male

DRUGS (2)
  1. DUTASTERIDE [Suspect]
     Active Substance: DUTASTERIDE
     Indication: Hair transplant
     Route: 065
  2. MINOXIDIL [Concomitant]
     Active Substance: MINOXIDIL
     Route: 048

REACTIONS (1)
  - Off label use [Unknown]
